FAERS Safety Report 19900616 (Version 2)
Quarter: 2022Q4

REPORT INFORMATION
  Report Type: Spontaneous
  Country: US (occurrence: US)
  Receive Date: 20210930
  Receipt Date: 20221018
  Transmission Date: 20230112
  Serious: No
  Sender: FDA-Public Use
  Company Number: US-CELLTRION INC.-2021US009995

PATIENT

DRUGS (1)
  1. INFLECTRA [Suspect]
     Active Substance: INFLIXIMAB-DYYB
     Indication: Hidradenitis
     Dosage: 10MG/KG, CYCLIC (10MG/KG EVERY 28 DAYS WITH CURRENT WEIGHT OF 146.5KG QUANTITY: 1500MG REFILLS: 12
     Route: 065

REACTIONS (2)
  - Hidradenitis [Unknown]
  - Off label use [Unknown]
